FAERS Safety Report 5057914-1 (Version None)
Quarter: 2006Q3

REPORT INFORMATION
  Report Type: 
  Country: None (occurrence: None)
  Receive Date: 20060721
  Receipt Date: 20060331
  Transmission Date: 20061208
  Serious: No
  Sender: FDA-Public Use
  Company Number: US-GLAXOSMITHKLINE-A0599924A

PATIENT
  Sex: Male

DRUGS (6)
  1. AVANDIA [Suspect]
     Dosage: 2MG TWICE PER DAY
     Route: 048
  2. ALLOPURINOL [Concomitant]
  3. HYDROCHLOROTHIAZIDE [Concomitant]
  4. TOPROL-XL [Concomitant]
  5. SPIRONOLACTONE [Concomitant]
  6. PREVACID [Concomitant]

REACTIONS (1)
  - BLOOD GLUCOSE FLUCTUATION [None]
